FAERS Safety Report 25155211 (Version 1)
Quarter: 2025Q2

REPORT INFORMATION
  Report Type: Spontaneous
  Country: US (occurrence: US)
  Receive Date: 20250403
  Receipt Date: 20250403
  Transmission Date: 20250717
  Serious: Yes (Life-Threatening, Hospitalization, Other)
  Sender: PFIZER
  Company Number: US-PFIZER INC-PV202500038528

PATIENT
  Sex: Female

DRUGS (2)
  1. EPINEPHRINE [Suspect]
     Active Substance: EPINEPHRINE
     Indication: Local anaesthesia
  2. ARTICAINE [Suspect]
     Active Substance: ARTICAINE
     Indication: Local anaesthesia

REACTIONS (2)
  - Cardiac arrest [Recovering/Resolving]
  - Off label use [Unknown]
